FAERS Safety Report 21724474 (Version 1)
Quarter: 2022Q4

REPORT INFORMATION
  Report Type: Other
  Country: IT (occurrence: IT)
  Receive Date: 20221213
  Receipt Date: 20221213
  Transmission Date: 20230113
  Serious: Yes (Other)
  Sender: FDA-Public Use
  Company Number: IT-CELLTRION INC.-2022IT020762

PATIENT

DRUGS (3)
  1. INFLIXIMAB [Suspect]
     Active Substance: INFLIXIMAB
     Indication: Crohn^s disease
     Dosage: UNKNOWN
  2. IMRALDI [Suspect]
     Active Substance: ADALIMUMAB
     Indication: Crohn^s disease
     Dosage: EVERY 7 DAYS (UNKNOWN (RESTARTED). 1 VIAL)
     Dates: start: 202105
  3. IMRALDI [Suspect]
     Active Substance: ADALIMUMAB
     Dosage: UNKNOWN

REACTIONS (4)
  - Anaemia [Recovered/Resolved]
  - Crohn^s disease [Unknown]
  - Maternal exposure during pregnancy [Unknown]
  - Drug ineffective [Unknown]

NARRATIVE: CASE EVENT DATE: 20220809
